FAERS Safety Report 22926158 (Version 2)
Quarter: 2023Q4

REPORT INFORMATION
  Report Type: Spontaneous
  Country: FI (occurrence: FI)
  Receive Date: 20230909
  Receipt Date: 20231106
  Transmission Date: 20240109
  Serious: Yes (Other)
  Sender: FDA-Public Use
  Company Number: None

PATIENT
  Age: 18 Year
  Sex: Female

DRUGS (9)
  1. KEPPRA [Suspect]
     Active Substance: LEVETIRACETAM
     Indication: Epilepsy
     Dosage: 500 MILLIGRAM, 2X/DAY (BID)
     Dates: start: 202205
  2. KEPPRA [Suspect]
     Active Substance: LEVETIRACETAM
     Dosage: 1500 MILLIGRAM
     Dates: start: 20220828
  3. KEPPRA [Suspect]
     Active Substance: LEVETIRACETAM
     Dosage: 500 MILLIGRAM, DAILY DOSE (1/2 + 1/2 TAB)
     Dates: start: 20220923
  4. KEPPRA [Suspect]
     Active Substance: LEVETIRACETAM
     Dosage: 500 MILLIGRAM, 2X/DAY (BID)
     Dates: start: 20220909, end: 20220930
  5. LAMOTRIGINE [Concomitant]
     Active Substance: LAMOTRIGINE
     Indication: Epilepsy
     Dosage: 25 MILLIGRAM, ONCE DAILY (QD), EVENING
     Dates: start: 20220825
  6. LAMOTRIGINE [Concomitant]
     Active Substance: LAMOTRIGINE
     Dosage: 25 MILLIGRAM, ONCE DAILY (QD)
     Dates: start: 20220826
  7. LAMOTRIGINE [Concomitant]
     Active Substance: LAMOTRIGINE
     Dosage: 25 MILLIGRAM, ONCE DAILY (QD) (EVENING)
  8. LAMOTRIGINE [Concomitant]
     Active Substance: LAMOTRIGINE
     Dosage: 50 MILLIGRAM, 2X/DAY (BID)
     Dates: start: 20220923
  9. LAMOTRIGINE [Concomitant]
     Active Substance: LAMOTRIGINE
     Dosage: 75 MILLIGRAM, 2X/DAY (BID)
     Dates: start: 20220930

REACTIONS (10)
  - Seizure [Unknown]
  - Asthenia [Unknown]
  - Hyperacusis [Unknown]
  - Gait disturbance [Unknown]
  - Dizziness [Unknown]
  - Muscle twitching [Unknown]
  - Musculoskeletal stiffness [Unknown]
  - Dyspnoea [Unknown]
  - Muscle spasms [Unknown]
  - Irritability [Unknown]

NARRATIVE: CASE EVENT DATE: 20220101
